FAERS Safety Report 10101894 (Version 1)
Quarter: 2014Q2

REPORT INFORMATION
  Report Type: Spontaneous
  Country: GB (occurrence: GB)
  Receive Date: 20140424
  Receipt Date: 20140424
  Transmission Date: 20141212
  Serious: Yes (Death, Other)
  Sender: FDA-Public Use
  Company Number: GB-BAXTER-2014BAX019743

PATIENT
  Age: 52 Year
  Sex: Male

DRUGS (3)
  1. CYCLOPHOSPHAMIDE INJECTION 1G [Suspect]
     Indication: CONCENTRIC SCLEROSIS
     Route: 065
  2. CYCLOPHOSPHAMIDE INJECTION 1G [Suspect]
     Indication: OFF LABEL USE
  3. ALEMTUZUMAB [Suspect]
     Indication: CONCENTRIC SCLEROSIS
     Route: 065

REACTIONS (3)
  - Pneumonia aspiration [Fatal]
  - Disease progression [Not Recovered/Not Resolved]
  - Drug ineffective [Not Recovered/Not Resolved]
